FAERS Safety Report 12194673 (Version 1)
Quarter: 2016Q1

REPORT INFORMATION
  Report Type: Spontaneous
  Country: US (occurrence: US)
  Receive Date: 20160321
  Receipt Date: 20160321
  Transmission Date: 20160526
  Serious: Yes (Other)
  Sender: FDA-Public Use
  Company Number: US-GLAXOSMITHKLINE-US2016GSK038017

PATIENT
  Age: 67 Year
  Sex: Male

DRUGS (1)
  1. TANZEUM [Suspect]
     Active Substance: ALBIGLUTIDE
     Indication: TYPE 2 DIABETES MELLITUS
     Dosage: 30 MG, WE
     Route: 042
     Dates: start: 20160220

REACTIONS (6)
  - Eye haemorrhage [Unknown]
  - Product preparation error [Unknown]
  - Vision blurred [Not Recovered/Not Resolved]
  - Eye swelling [Unknown]
  - Device use error [Unknown]
  - Eye infection [Unknown]

NARRATIVE: CASE EVENT DATE: 20160224
